FAERS Safety Report 11581805 (Version 1)
Quarter: 2015Q4

REPORT INFORMATION
  Report Type: Spontaneous
  Country: US (occurrence: US)
  Receive Date: 20151001
  Receipt Date: 20151001
  Transmission Date: 20160304
  Serious: No
  Sender: FDA-Public Use
  Company Number: US-ROCHE-695105

PATIENT
  Age: 52 Year
  Sex: Female

DRUGS (4)
  1. RIBAVIRIN. [Suspect]
     Active Substance: RIBAVIRIN
     Indication: HEPATITIS C
     Dosage: IN DIVIDED DOSES
     Route: 065
  2. SOMA [Concomitant]
     Active Substance: CARISOPRODOL
     Dosage: DRUG REPORTED AS : SOMA 4
     Route: 065
  3. PEGASYS [Suspect]
     Active Substance: PEGINTERFERON ALFA-2A
     Indication: HEPATITIS C
     Dosage: PRE-FILLED SYRINGE
     Route: 065
  4. VALIUM [Concomitant]
     Active Substance: DIAZEPAM
     Route: 065

REACTIONS (6)
  - Stress [Not Recovered/Not Resolved]
  - Memory impairment [Unknown]
  - Anger [Unknown]
  - Depression [Unknown]
  - Wrong technique in product usage process [Unknown]
  - Back pain [Unknown]

NARRATIVE: CASE EVENT DATE: 20100315
